FAERS Safety Report 6558063-3 (Version None)
Quarter: 2010Q1

REPORT INFORMATION
  Report Type: 
  Country: None (occurrence: None)
  Receive Date: 20100129
  Receipt Date: 20100122
  Transmission Date: 20100710
  Serious: Yes (Other)
  Sender: FDA-Public Use
  Company Number: US-ROXANE LABORATORIES, INC.-2010-RO-00088RO

PATIENT
  Age: 48 Year
  Sex: Male

DRUGS (31)
  1. RISPERIDONE [Suspect]
     Indication: IMPULSE-CONTROL DISORDER
     Dosage: 8 MG
  2. RISPERIDONE [Suspect]
     Indication: OBSESSIVE-COMPULSIVE DISORDER
     Dosage: 4 MG
     Dates: start: 20030201
  3. RISPERIDONE [Suspect]
     Dosage: 8 MG
     Dates: start: 20030801
  4. RISPERIDONE [Suspect]
     Dates: start: 20041201
  5. RISPERIDONE [Suspect]
     Dosage: 1 MG
     Dates: start: 20051001, end: 20060101
  6. RISPERIDONE [Suspect]
     Dosage: 6 MG
     Dates: start: 20060601
  7. LEVETIRACETAM [Suspect]
     Dates: start: 20040101
  8. LEVETIRACETAM [Suspect]
     Dosage: 3000 MG
  9. LAMOTRIGINE [Suspect]
     Dates: start: 20050901
  10. LAMOTRIGINE [Suspect]
     Dates: start: 20060101
  11. LAMOTRIGINE [Suspect]
     Dosage: 200 MG
  12. VALPROIC ACID [Suspect]
     Indication: IMPULSE-CONTROL DISORDER
     Dosage: 2000 MG
  13. VALPROIC ACID [Suspect]
     Indication: OBSESSIVE-COMPULSIVE DISORDER
     Dates: start: 20060101
  14. VALPROIC ACID [Suspect]
     Dosage: 500 MG
  15. CLOMIPRAMINE [Suspect]
     Indication: IMPULSE-CONTROL DISORDER
     Dosage: 150 MG
  16. CLOMIPRAMINE [Suspect]
     Indication: OBSESSIVE-COMPULSIVE DISORDER
  17. FLURAZEPAM [Suspect]
     Indication: IMPULSE-CONTROL DISORDER
     Dosage: 15 MG
     Dates: end: 20020101
  18. FLURAZEPAM [Suspect]
     Indication: OBSESSIVE-COMPULSIVE DISORDER
  19. TRIHEXYPHENIDYL HCL [Suspect]
     Indication: IMPULSE-CONTROL DISORDER
     Dosage: 4 MG
     Dates: end: 20011001
  20. TRIHEXYPHENIDYL HCL [Suspect]
     Indication: OBSESSIVE-COMPULSIVE DISORDER
  21. QUETIAPINE [Suspect]
     Dates: start: 20040101
  22. QUETIAPINE [Suspect]
     Dosage: 400 MG
     Dates: start: 20051001
  23. QUETIAPINE [Suspect]
     Dosage: 600 MG
     Dates: start: 20060101
  24. QUETIAPINE [Suspect]
     Dosage: 700 MG
     Dates: start: 20060801
  25. AMANTADINE HCL [Suspect]
     Indication: EXTRAPYRAMIDAL DISORDER
     Dates: start: 20041201
  26. AMANTADINE HCL [Suspect]
     Dosage: 200 MG
     Dates: start: 20051001
  27. ARIPIPRAZOLE [Suspect]
     Indication: HYPERPROLACTINAEMIA
     Dosage: 5 MG
     Dates: start: 20060801
  28. ARIPIPRAZOLE [Suspect]
     Dosage: 10 MG
     Dates: start: 20060901
  29. ARIPIPRAZOLE [Suspect]
     Dosage: 15 MG
     Dates: start: 20061001
  30. BISACODYL [Suspect]
     Dosage: 10 MG
  31. DOCUSATE [Suspect]
     Dosage: 200 MG

REACTIONS (7)
  - ABNORMAL BEHAVIOUR [None]
  - ADJUSTMENT DISORDER [None]
  - CONDITION AGGRAVATED [None]
  - EXTRAPYRAMIDAL DISORDER [None]
  - HYPERPROLACTINAEMIA [None]
  - PARKINSONISM [None]
  - TREMOR [None]
